FAERS Safety Report 14079280 (Version 3)
Quarter: 2017Q4

REPORT INFORMATION
  Report Type: Spontaneous
  Country: US (occurrence: US)
  Receive Date: 20171012
  Receipt Date: 20171108
  Transmission Date: 20180321
  Serious: Yes (Other)
  Sender: FDA-Public Use
  Company Number: US-009507513-1710USA005905

PATIENT
  Age: 48 Year

DRUGS (3)
  1. CELECOXIB. [Concomitant]
     Active Substance: CELECOXIB
     Indication: PAIN MANAGEMENT
     Dosage: 200 MG DAILY
  2. DEXAMETHASONE. [Suspect]
     Active Substance: DEXAMETHASONE
     Indication: PAIN MANAGEMENT
     Dosage: 8 MG MIXED WITH 1 ML OF LIDOCAINE 1% PER LEVEL
     Route: 008
  3. LIDOCAINE. [Suspect]
     Active Substance: LIDOCAINE
     Indication: PAIN MANAGEMENT
     Dosage: 8 MG OF DEXAMETHASONE MIXED WITH 1 ML PER LEVEL
     Route: 008

REACTIONS (2)
  - Extradural haematoma [Recovered/Resolved]
  - Drug ineffective [Unknown]
